FAERS Safety Report 16795030 (Version 2)
Quarter: 2019Q3

REPORT INFORMATION
  Report Type: Spontaneous
  Country: US (occurrence: US)
  Receive Date: 20190911
  Receipt Date: 20190920
  Transmission Date: 20191005
  Serious: No
  Sender: FDA-Public Use
  Company Number: US-PFIZER INC-2019392455

PATIENT
  Age: 41 Year
  Sex: Female
  Weight: 71.67 kg

DRUGS (4)
  1. LYRICA [Suspect]
     Active Substance: PREGABALIN
     Indication: SEIZURE
     Dosage: 300 MG, 2X/DAY
     Route: 048
  2. LYRICA [Suspect]
     Active Substance: PREGABALIN
     Indication: NEUROPATHY PERIPHERAL
  3. LYRICA [Suspect]
     Active Substance: PREGABALIN
     Indication: MULTIPLE SCLEROSIS
  4. KEPPRA [Concomitant]
     Active Substance: LEVETIRACETAM
     Indication: SEIZURE
     Dosage: UNK

REACTIONS (1)
  - Nightmare [Unknown]
